FAERS Safety Report 9502829 (Version 2)
Quarter: 2013Q3

REPORT INFORMATION
  Report Type: Spontaneous
  Country: US (occurrence: US)
  Receive Date: 20130906
  Receipt Date: 20130906
  Transmission Date: 20140515
  Serious: Yes (Congenital Anomaly)
  Sender: FDA-Public Use
  Company Number: US-JNJFOC-JAUSA20910

PATIENT
  Age: 0 Day
  Sex: Male

DRUGS (3)
  1. VERMOX [Suspect]
     Indication: ENTEROBIASIS
     Route: 064
     Dates: start: 19800819, end: 19800819
  2. VERMOX [Suspect]
     Indication: ENTEROBIASIS
     Route: 064
     Dates: start: 19800730, end: 19800730
  3. SOMA [Concomitant]

REACTIONS (2)
  - Hypospadias [Not Recovered/Not Resolved]
  - Foetal exposure during pregnancy [Recovered/Resolved]
